FAERS Safety Report 6203546 (Version 11)
Quarter: 2021Q3

REPORT INFORMATION
  Report Type: Spontaneous
  Country: GB (occurrence: GB)
  Receive Date: 20061228
  Receipt Date: 20210804
  Transmission Date: 20211014
  Serious: Yes (Life-Threatening, Hospitalization, Other)
  Sender: FDA-Public Use
  Company Number: PHFR2006GB03725

PATIENT
  Age: 12 Year
  Sex: Male

DRUGS (6)
  1. PARACETAMOL [Suspect]
     Active Substance: ACETAMINOPHEN
     Indication: ABDOMINAL PAIN
     Dosage: 65 MG, QD
     Route: 042
  2. PARACETAMOL [Suspect]
     Active Substance: ACETAMINOPHEN
     Indication: PAIN
     Dosage: 53 MG/KG, QD
     Route: 042
  3. PARACETAMOL [Suspect]
     Active Substance: ACETAMINOPHEN
     Dosage: 50 MG, QD
     Route: 042
  4. MORPHINE [Suspect]
     Active Substance: MORPHINE
     Indication: ABDOMINAL PAIN
     Dosage: UNK (DOSE PATIENT?CONTROLLED ANALGESIA)
     Route: 037
  5. DICLOFENAC [Suspect]
     Active Substance: DICLOFENAC
     Indication: PAIN
     Dosage: UNK
     Route: 065
  6. MORPHINE [Suspect]
     Active Substance: MORPHINE
     Indication: PAIN
     Dosage: UNK
     Route: 042

REACTIONS (11)
  - Rectal haemorrhage [Recovering/Resolving]
  - Hypovolaemia [Not Recovered/Not Resolved]
  - Pain [Recovering/Resolving]
  - Drug ineffective [Unknown]
  - Condition aggravated [Unknown]
  - Malaise [Unknown]
  - Colitis ulcerative [Recovering/Resolving]
  - Lethargy [Unknown]
  - Abdominal pain [Recovering/Resolving]
  - Pallor [Recovering/Resolving]
  - Megacolon [Recovering/Resolving]

NARRATIVE: CASE EVENT DATE: 2007
